FAERS Safety Report 8291856-3 (Version None)
Quarter: 2012Q2

REPORT INFORMATION
  Report Type: 
  Country: None (occurrence: None)
  Receive Date: 20120417
  Receipt Date: 20120410
  Transmission Date: 20120825
  Serious: Yes (Other)
  Sender: FDA-Public Use
  Company Number: US-ELI_LILLY_AND_COMPANY-US201201004462

PATIENT
  Sex: Female

DRUGS (2)
  1. FORTEO [Suspect]
     Dosage: 20 UG, QD
     Route: 065
     Dates: end: 20120301
  2. FORTEO [Suspect]
     Indication: OSTEOPOROSIS
     Dosage: 20 UG, QD
     Route: 065
     Dates: start: 20111020

REACTIONS (7)
  - INJECTION SITE HAEMATOMA [None]
  - INJECTION SITE DISCOLOURATION [None]
  - FAECES DISCOLOURED [None]
  - HAEMORRHAGE [None]
  - VISUAL ACUITY REDUCED [None]
  - FAECAL VOLUME INCREASED [None]
  - DIARRHOEA [None]
